FAERS Safety Report 6812873-3 (Version None)
Quarter: 2010Q3

REPORT INFORMATION
  Report Type: 
  Country: None (occurrence: None)
  Receive Date: 20100701
  Receipt Date: 20100622
  Transmission Date: 20110219
  Serious: Yes (Hospitalization)
  Sender: FDA-Public Use
  Company Number: GXKR2010ES07049

PATIENT
  Age: 65 Year
  Sex: Female

DRUGS (6)
  1. AZITHROMYCIN (NGX) [Suspect]
     Indication: EAR INFECTION
     Dosage: 500 MG/DAY
     Route: 065
     Dates: start: 20100211, end: 20100213
  2. SIMVASTATIN [Interacting]
     Indication: HYPERLIPIDAEMIA
     Dosage: 10 MG/DAY
     Route: 065
  3. AMOXICILLIN AND CLAVULANATE POTASSIUM [Interacting]
     Indication: EAR INFECTION
     Dosage: UNK
     Route: 048
     Dates: start: 20100214, end: 20100322
  4. PAROXETINE [Concomitant]
     Dosage: 10 MG, UNK
     Route: 048
  5. ALPRAZOLAM [Concomitant]
     Dosage: 0.25 MG, UNK
     Route: 048
  6. RIFAXIMIN [Concomitant]
     Dosage: 200 MG, UNK

REACTIONS (2)
  - DRUG INTERACTION [None]
  - HEPATITIS CHOLESTATIC [None]
